FAERS Safety Report 21571279 (Version 1)
Quarter: 2022Q4

REPORT INFORMATION
  Report Type: Spontaneous
  Country: US (occurrence: None)
  Receive Date: 20221107
  Receipt Date: 20221107
  Transmission Date: 20230113
  Serious: Yes (Death, Life-Threatening, Hospitalization)
  Sender: FDA-Public Use
  Company Number: None

PATIENT
  Age: 72 Year
  Sex: Male
  Weight: 114 kg

DRUGS (1)
  1. MORPHINE [Suspect]
     Active Substance: MORPHINE
     Indication: Pain
     Dosage: 30 MG BID PO
     Route: 048
     Dates: start: 20220906, end: 20220916

REACTIONS (4)
  - Acute kidney injury [None]
  - Coma [None]
  - Overdose [None]
  - Acute kidney injury [None]

NARRATIVE: CASE EVENT DATE: 20220929
